FAERS Safety Report 9343764 (Version 1)
Quarter: 2013Q2

REPORT INFORMATION
  Report Type: Spontaneous
  Country: JP (occurrence: JP)
  Receive Date: 20130612
  Receipt Date: 20130612
  Transmission Date: 20140414
  Serious: Yes (Other)
  Sender: FDA-Public Use
  Company Number: JP-ACCORD-018022

PATIENT
  Age: 31 Year
  Sex: Male

DRUGS (3)
  1. ETOPOSIDE [Suspect]
     Indication: EXTRAGONADAL PRIMARY GERM CELL TUMOUR
  2. CISPLATIN [Suspect]
     Indication: EXTRAGONADAL PRIMARY GERM CELL TUMOUR
  3. BLEOMYCIN [Suspect]
     Indication: EXTRAGONADAL PRIMARY GERM CELL TUMOUR

REACTIONS (2)
  - Pancytopenia [Recovered/Resolved]
  - Choriocarcinoma [Recovered/Resolved]
